FAERS Safety Report 20737672 (Version 3)
Quarter: 2022Q2

REPORT INFORMATION
  Report Type: Report from Study
  Country: US (occurrence: US)
  Receive Date: 20220422
  Receipt Date: 20220519
  Transmission Date: 20220721
  Serious: Yes (Death, Hospitalization, Other)
  Sender: FDA-Public Use
  Company Number: US-ACADIA PHARMACEUTICALS INC.-ACA-2022-PIM-001273

PATIENT
  Age: 65 Year
  Sex: Male
  Weight: 82 kg

DRUGS (26)
  1. NUPLAZID [Suspect]
     Active Substance: PIMAVANSERIN TARTRATE
     Indication: Parkinson^s disease psychosis
     Dosage: 34 MILLIGRAM, QD
     Route: 048
     Dates: start: 20220328
  2. NUPLAZID [Suspect]
     Active Substance: PIMAVANSERIN TARTRATE
     Indication: Hallucination
  3. NUPLAZID [Suspect]
     Active Substance: PIMAVANSERIN TARTRATE
     Indication: Delusion
  4. NORVASC [Concomitant]
     Active Substance: AMLODIPINE BESYLATE
     Dosage: 5 MILLIGRAM, QD
     Route: 048
  5. ASPIRIN [Concomitant]
     Active Substance: ASPIRIN
     Dosage: 81 MILLIGRAM, QD
     Route: 048
  6. LIPITOR [Concomitant]
     Active Substance: ATORVASTATIN CALCIUM
     Dosage: 80 MILLIGRAM, QD, NIGHTLY
     Route: 048
  7. SINEMET [Concomitant]
     Active Substance: CARBIDOPA\LEVODOPA
     Dosage: 25-100 MG; 1 TAB TID
     Route: 048
  8. SINEMET [Concomitant]
     Active Substance: CARBIDOPA\LEVODOPA
     Dosage: 50-200 MG, 1 TAB NIGHTLY AT 9 PM
     Route: 048
  9. PLAVIX [Concomitant]
     Active Substance: CLOPIDOGREL BISULFATE
     Dosage: 75 MILLIGRAM, QD
     Route: 048
  10. NEURONTIN [Concomitant]
     Active Substance: GABAPENTIN
     Dosage: 100MG; 1-3 CAPS AT BEDTIME
     Route: 048
  11. GLUCOTROL [Concomitant]
     Active Substance: GLIPIZIDE
     Dosage: 10 MILLIGRAM, BID; BEFORE MEALS
     Route: 048
  12. NORCO [Concomitant]
     Active Substance: ACETAMINOPHEN\HYDROCODONE BITARTRATE
     Dosage: 10-325 MG; 1 TAB EVERY 4 HOURS
     Route: 048
     Dates: start: 20220413
  13. IMDUR [Concomitant]
     Active Substance: ISOSORBIDE MONONITRATE
     Dosage: 30MG; 3 TABLETS DAILY
     Route: 048
  14. PRINIVIL [Concomitant]
     Active Substance: LISINOPRIL
     Dosage: 30 MILLIGRAM, QD
     Route: 048
  15. ZESTRIL [Concomitant]
     Active Substance: LISINOPRIL
     Dosage: 30 MILLIGRAM, QD
     Route: 048
  16. GLUCOPHAGE [Concomitant]
     Active Substance: METFORMIN HYDROCHLORIDE
     Dosage: 500 MILLIGRAM, BID WITH MEALS
     Route: 048
  17. ROBAXIN [Concomitant]
     Active Substance: METHOCARBAMOL
     Dosage: 750 MILLIGRAM, QD AT BEDTIME
     Route: 048
  18. MINERALS\VITAMINS [Concomitant]
     Active Substance: MINERALS\VITAMINS
     Dosage: 1 TABLET DAILY
     Route: 048
  19. NARCAN [Concomitant]
     Active Substance: NALOXONE HYDROCHLORIDE
     Indication: Drug use disorder
     Dosage: 4MG/0.1 ML; 1 SPRAY PRN
     Route: 045
  20. NITROSTAT [Concomitant]
     Active Substance: NITROGLYCERIN
     Indication: Chest pain
     Dosage: 0.4 MG TAB, EVERY 5 MIN, PRN
     Route: 060
  21. PRILOSEC [Concomitant]
     Active Substance: OMEPRAZOLE MAGNESIUM
     Indication: Gastric pH decreased
     Dosage: 40 MILLIGRAM, QD
     Route: 048
  22. MIRALAX [Concomitant]
     Active Substance: POLYETHYLENE GLYCOL 3350
     Dosage: 17 GRAM, PRN
     Route: 048
  23. SEROQUEL [Concomitant]
     Active Substance: QUETIAPINE FUMARATE
     Dosage: 25 MG TAB; TAKE HALF TAB BID
     Route: 048
  24. RANEXA [Concomitant]
     Active Substance: RANOLAZINE
     Dosage: 500 MILLIGRAM, BID
     Route: 048
  25. EXELON [Concomitant]
     Active Substance: RIVASTIGMINE TARTRATE
     Dosage: 3 MILLIGRAM, BID
     Route: 048
  26. AMBIEN [Concomitant]
     Active Substance: ZOLPIDEM TARTRATE
     Dosage: 10 MILLIGRAM AT BEDTIME, PRN
     Route: 048

REACTIONS (6)
  - Death [Recovered/Resolved]
  - Terminal state [Unknown]
  - Paranoia [Recovered/Resolved]
  - Jealous delusion [Recovered/Resolved]
  - Hallucination [Recovered/Resolved]
  - Aggression [Recovered/Resolved]

NARRATIVE: CASE EVENT DATE: 20220328
